FAERS Safety Report 10178165 (Version 2)
Quarter: 2014Q2

REPORT INFORMATION
  Report Type: Report from Study
  Country: DE (occurrence: DE)
  Receive Date: 20140519
  Receipt Date: 20140606
  Transmission Date: 20141212
  Serious: Yes (Hospitalization)
  Sender: FDA-Public Use
  Company Number: DE-JNJFOC-20140507040

PATIENT
  Age: 74 Year
  Sex: Male
  Weight: 88 kg

DRUGS (6)
  1. XARELTO [Suspect]
     Indication: THROMBOSIS PROPHYLAXIS
     Route: 048
     Dates: start: 20130130
  2. XARELTO [Suspect]
     Indication: DEEP VEIN THROMBOSIS
     Route: 048
     Dates: start: 20130130
  3. METOPROLOL [Concomitant]
     Route: 065
     Dates: start: 2010
  4. METFORMIN [Concomitant]
     Route: 065
     Dates: start: 2012
  5. MOXONIDIN [Concomitant]
     Route: 065
     Dates: start: 2010
  6. RAMIPRIL [Concomitant]
     Route: 065
     Dates: start: 2005

REACTIONS (1)
  - Hip arthroplasty [Recovered/Resolved]
